FAERS Safety Report 12728517 (Version 2)
Quarter: 2016Q3

REPORT INFORMATION
  Report Type: Spontaneous
  Country: JP (occurrence: JP)
  Receive Date: 20160909
  Receipt Date: 20160919
  Transmission Date: 20161109
  Serious: Yes (Hospitalization)
  Sender: FDA-Public Use
  Company Number: JP-PFIZER INC-2016320531

PATIENT
  Age: 62 Year
  Sex: Female
  Weight: 50 kg

DRUGS (8)
  1. LYRICA [Suspect]
     Active Substance: PREGABALIN
     Dosage: 75 MG, 1X/DAY (BEFORE BEDTIME)
     Route: 048
     Dates: start: 20160527, end: 20160615
  2. TRAMCET [Concomitant]
     Active Substance: ACETAMINOPHEN\TRAMADOL
     Indication: CENTRAL PAIN SYNDROME
     Dosage: 1 DF, 1X/DAY (BEFORE BEDTIME)
     Route: 048
     Dates: start: 20160616, end: 20160622
  3. LYRICA [Suspect]
     Active Substance: PREGABALIN
     Indication: CENTRAL PAIN SYNDROME
     Dosage: 25 MG, 1X/DAY (BEFORE BEDTIME)
     Route: 048
     Dates: start: 20160422, end: 20160427
  4. CARBAMAZEPINE. [Suspect]
     Active Substance: CARBAMAZEPINE
     Indication: CENTRAL PAIN SYNDROME
     Dosage: 100 MG, 1X/DAY
     Route: 048
     Dates: start: 20160422, end: 20160427
  5. CARBAMAZEPINE. [Suspect]
     Active Substance: CARBAMAZEPINE
     Dosage: 100 MG, 2X/DAY (MORNING AND BEFORE BEDTIME)
     Route: 048
     Dates: start: 20160428, end: 20160627
  6. TRAMCET [Concomitant]
     Active Substance: ACETAMINOPHEN\TRAMADOL
     Dosage: 1 DF, 2X/DAY (MORNING AND BEFORE BEDTIME)
     Route: 048
     Dates: start: 20160623
  7. LYRICA [Suspect]
     Active Substance: PREGABALIN
     Dosage: 75 MG DAILY (MORNING 25 MG, BEFORE BEDTIME: 50 MG)
     Route: 048
     Dates: start: 20160616, end: 20160627
  8. LYRICA [Suspect]
     Active Substance: PREGABALIN
     Dosage: 25 MG, 2X/DAY (MORNING AND BEFORE BEDTIME)
     Route: 048
     Dates: start: 20160428, end: 20160526

REACTIONS (5)
  - Diplopia [Unknown]
  - Visual field defect [Unknown]
  - Visual acuity reduced [Unknown]
  - Disease progression [Unknown]
  - Blepharospasm [Unknown]

NARRATIVE: CASE EVENT DATE: 201606
